FAERS Safety Report 4745793-9 (Version None)
Quarter: 2005Q3

REPORT INFORMATION
  Report Type: 
  Country: None (occurrence: None)
  Receive Date: 20050815
  Receipt Date: 20050815
  Transmission Date: 20060218
  Serious: Yes (Hospitalization)
  Sender: FDA-Public Use
  Company Number: None

PATIENT
  Sex: Male
  Weight: 66 kg

DRUGS (2)
  1. TRAZADONE    100MG [Suspect]
     Indication: SLEEP DISORDER
     Dosage: 100MG   QHS  ORAL
     Route: 048
  2. FLUOXETINE [Suspect]
     Indication: AFFECTIVE DISORDER
     Dosage: 20MG  QDAY  ORAL
     Route: 048

REACTIONS (2)
  - EOSINOPHILIC PNEUMONIA ACUTE [None]
  - INTERSTITIAL LUNG DISEASE [None]
